FAERS Safety Report 25706992 (Version 2)
Quarter: 2025Q3

REPORT INFORMATION
  Report Type: Spontaneous
  Country: US (occurrence: US)
  Receive Date: 20250820
  Receipt Date: 20250822
  Transmission Date: 20251020
  Serious: Yes (Other)
  Sender: PFIZER
  Company Number: US-PFIZER INC-202500165934

PATIENT
  Age: 83 Year
  Sex: Female

DRUGS (2)
  1. IBRANCE [Suspect]
     Active Substance: PALBOCICLIB
  2. FEMARA [Suspect]
     Active Substance: LETROZOLE

REACTIONS (3)
  - Neuropathy peripheral [Unknown]
  - Arthralgia [Unknown]
  - Balance disorder [Unknown]
